FAERS Safety Report 7469840-9 (Version None)
Quarter: 2011Q2

REPORT INFORMATION
  Report Type: 
  Country: None (occurrence: None)
  Receive Date: 20110510
  Receipt Date: 20110421
  Transmission Date: 20111010
  Serious: No
  Sender: FDA-Public Use
  Company Number: US-B.I. PHARMACEUTICALS,INC./RIDGEFIELD-2011-BP-05042BP

PATIENT
  Sex: Male

DRUGS (9)
  1. AMIODARONE [Concomitant]
     Dosage: 200 MG
  2. TOPIRAMATE [Concomitant]
     Dosage: 75 MG
  3. LIPITOR [Concomitant]
     Dosage: 2.5 MG
  4. LEVEMIR [Concomitant]
  5. PRADAXA [Suspect]
     Indication: ANTICOAGULANT THERAPY
     Dosage: 300 MG
  6. ARTHROTECT [Concomitant]
     Dosage: 150 MG
  7. RAMIPRIL [Concomitant]
     Dosage: 2.5 MG
  8. SERTRALINE HYDROCHLORIDE [Concomitant]
     Dosage: 40 MG
  9. SEROQUEL [Concomitant]
     Dosage: 2.5 MG

REACTIONS (8)
  - NECK PAIN [None]
  - CHEST PAIN [None]
  - FATIGUE [None]
  - ABDOMINAL PAIN UPPER [None]
  - BACK PAIN [None]
  - DYSPNOEA [None]
  - PAIN [None]
  - ANGINA PECTORIS [None]
